FAERS Safety Report 4681723-6 (Version None)
Quarter: 2005Q2

REPORT INFORMATION
  Report Type: 
  Country: None (occurrence: None)
  Receive Date: 20050602
  Receipt Date: 20050520
  Transmission Date: 20051028
  Serious: Yes (Other)
  Sender: FDA-Public Use
  Company Number: HQWYE960611APR05

PATIENT
  Age: 72 Year
  Sex: Female

DRUGS (8)
  1. EFFEXOR XR [Suspect]
     Indication: MAJOR DEPRESSION
     Dosage: SEE IMAGE
     Route: 048
     Dates: start: 20050221, end: 20050225
  2. EFFEXOR XR [Suspect]
     Indication: MAJOR DEPRESSION
     Dosage: SEE IMAGE
     Route: 048
     Dates: start: 20050226, end: 20050304
  3. EFFEXOR XR [Suspect]
     Indication: MAJOR DEPRESSION
     Dosage: SEE IMAGE
     Route: 048
     Dates: start: 20050305, end: 20050311
  4. EFFEXOR XR [Suspect]
     Indication: MAJOR DEPRESSION
     Dosage: SEE IMAGE
     Route: 048
     Dates: start: 20050312, end: 20050503
  5. ASPIRIN [Suspect]
     Indication: PROPHYLAXIS
     Dosage: 81 MG 2X PER 1 DAY; ORAL
     Route: 048
     Dates: start: 20050301, end: 20050301
  6. CLONAZEPAM [Concomitant]
  7. MULTIVITAMINS (ASCORBIC ACID/ERGOCALCIFEROL/FOLIC ACID/NICOTINAMIDE/PA [Concomitant]
  8. BUPROPION HCL [Concomitant]

REACTIONS (15)
  - CONTUSION [None]
  - DECREASED APPETITE [None]
  - DIZZINESS [None]
  - FATIGUE [None]
  - GASTROINTESTINAL DISORDER [None]
  - INTERVERTEBRAL DISC DEGENERATION [None]
  - MARROW HYPERPLASIA [None]
  - MYELODYSPLASTIC SYNDROME [None]
  - PANCYTOPENIA [None]
  - REFRACTORY ANAEMIA WITH AN EXCESS OF BLASTS [None]
  - SCOLIOSIS [None]
  - SHIFT TO THE LEFT [None]
  - SPINAL OSTEOARTHRITIS [None]
  - VOMITING [None]
  - WEIGHT DECREASED [None]
